FAERS Safety Report 6398421-3 (Version None)
Quarter: 2009Q4

REPORT INFORMATION
  Report Type: 
  Country: None (occurrence: None)
  Receive Date: 20091013
  Receipt Date: 20091001
  Transmission Date: 20100525
  Serious: Yes (Hospitalization, Other)
  Sender: FDA-Public Use
  Company Number: US-CELGENEUS-163-21880-09090092

PATIENT
  Sex: Female

DRUGS (5)
  1. REVLIMID [Suspect]
     Indication: MULTIPLE MYELOMA
     Route: 048
     Dates: start: 20090701, end: 20090825
  2. REVLIMID [Suspect]
     Route: 048
     Dates: start: 20090310, end: 20090701
  3. REVLIMID [Suspect]
     Route: 048
     Dates: start: 20090901
  4. COUMADIN [Concomitant]
     Indication: DRUG USE FOR UNKNOWN INDICATION
     Route: 065
  5. LOVENOX [Concomitant]
     Indication: DRUG USE FOR UNKNOWN INDICATION
     Route: 065

REACTIONS (5)
  - HEPATIC ENZYME ABNORMAL [None]
  - KIDNEY INFECTION [None]
  - PERICARDIAL EFFUSION [None]
  - PNEUMONIA [None]
  - PROTHROMBIN TIME ABNORMAL [None]
